FAERS Safety Report 6673979-5 (Version None)
Quarter: 2010Q2

REPORT INFORMATION
  Report Type: 
  Country: None (occurrence: None)
  Receive Date: 20100409
  Receipt Date: 20100322
  Transmission Date: 20101027
  Serious: No
  Sender: FDA-Public Use
  Company Number: 2010BI000971

PATIENT
  Age: 48 Year
  Sex: Female

DRUGS (1)
  1. TYSABRI [Suspect]
     Indication: MULTIPLE SCLEROSIS
     Route: 042
     Dates: start: 20091116, end: 20100107

REACTIONS (8)
  - ERYTHEMA [None]
  - HYPERSENSITIVITY [None]
  - HYPOAESTHESIA [None]
  - INFUSION RELATED REACTION [None]
  - MIGRAINE [None]
  - MUSCULOSKELETAL PAIN [None]
  - NECK PAIN [None]
  - THROAT TIGHTNESS [None]
